FAERS Safety Report 11746231 (Version 1)
Quarter: 2015Q4

REPORT INFORMATION
  Report Type: Spontaneous
  Country: US (occurrence: US)
  Receive Date: 20151117
  Receipt Date: 20151117
  Transmission Date: 20160304
  Serious: No
  Sender: FDA-Public Use
  Company Number: US-LPDUSPRD-20150794

PATIENT
  Sex: Female
  Weight: 49.9 kg

DRUGS (1)
  1. INJECTAFER [Suspect]
     Active Substance: FERRIC CARBOXYMALTOSE
     Dosage: 675 MG (APPROXIMATED)
     Route: 042

REACTIONS (2)
  - Flushing [Recovered/Resolved]
  - Nausea [Recovered/Resolved]
